FAERS Safety Report 8738532 (Version 5)
Quarter: 2015Q2

REPORT INFORMATION
  Report Type: Spontaneous
  Country: US (occurrence: US)
  Receive Date: 20120823
  Receipt Date: 20150522
  Transmission Date: 20150821
  Serious: Yes (Hospitalization, Disabling)
  Sender: FDA-Public Use
  Company Number: US-009507513-1208USA006202

PATIENT
  Sex: Male

DRUGS (2)
  1. PROPECIA [Suspect]
     Active Substance: FINASTERIDE
     Indication: ALOPECIA
     Dosage: 1 MG, QD
     Route: 048
     Dates: start: 20060814
  2. PROPECIA [Suspect]
     Active Substance: FINASTERIDE
     Indication: ANDROGENETIC ALOPECIA

REACTIONS (10)
  - Loss of libido [Unknown]
  - Back pain [Unknown]
  - Anxiety [Not Recovered/Not Resolved]
  - Back injury [Unknown]
  - Erectile dysfunction [Unknown]
  - Anger [Not Recovered/Not Resolved]
  - Gynaecomastia [Unknown]
  - Depression [Unknown]
  - Sexual dysfunction [Not Recovered/Not Resolved]
  - Physical assault [Unknown]

NARRATIVE: CASE EVENT DATE: 2006
